FAERS Safety Report 24466755 (Version 1)
Quarter: 2024Q4

REPORT INFORMATION
  Report Type: Report from Study
  Country: US (occurrence: US)
  Receive Date: 20241018
  Receipt Date: 20241018
  Transmission Date: 20250115
  Serious: No
  Sender: ROCHE
  Company Number: US-ROCHE-3545807

PATIENT
  Age: 54 Year
  Sex: Female

DRUGS (24)
  1. XOLAIR [Suspect]
     Active Substance: OMALIZUMAB
     Indication: Asthma
     Dosage: 75 MG/0.5 ML, 150 MG
     Route: 058
  2. XOLAIR [Suspect]
     Active Substance: OMALIZUMAB
  3. CLOBETASOL [Concomitant]
     Active Substance: CLOBETASOL
  4. DULERA [Concomitant]
     Active Substance: FORMOTEROL FUMARATE DIHYDRATE\MOMETASONE FUROATE
  5. ALBUTEROL SULFATE [Concomitant]
     Active Substance: ALBUTEROL SULFATE
  6. COAL TAR [Concomitant]
     Active Substance: COAL TAR
  7. FLUOCINOLONE [Concomitant]
     Active Substance: FLUOCINOLONE
     Indication: Rash
     Route: 061
  8. FLUOCINOLONE [Concomitant]
     Active Substance: FLUOCINOLONE
     Indication: Pruritus
  9. FLUTICASONE [Concomitant]
     Active Substance: FLUTICASONE
  10. AZELASTINE [Concomitant]
     Active Substance: AZELASTINE
     Route: 045
  11. ALBUTEROL\IPRATROPIUM [Concomitant]
     Active Substance: ALBUTEROL\IPRATROPIUM
  12. CARMOL [UREA] [Concomitant]
  13. NYSTATIN [Concomitant]
     Active Substance: NYSTATIN
     Route: 048
  14. BETAMETHASONE\CLOTRIMAZOLE [Concomitant]
     Active Substance: BETAMETHASONE\CLOTRIMAZOLE
     Route: 061
  15. OSCAL D [Concomitant]
     Active Substance: CALCIUM CARBONATE\CHOLECALCIFEROL
  16. TYLENOL [Concomitant]
     Active Substance: ACETAMINOPHEN
     Route: 048
  17. CELEBREX [Concomitant]
     Active Substance: CELECOXIB
     Route: 048
  18. CETIRIZINE HYDROCHLORIDE [Concomitant]
     Active Substance: CETIRIZINE HYDROCHLORIDE
     Route: 048
  19. TEMOVATE [Concomitant]
     Active Substance: CLOBETASOL PROPIONATE
     Route: 061
  20. EPIPEN [Concomitant]
     Active Substance: EPINEPHRINE
  21. FLUCONAZOLE [Concomitant]
     Active Substance: FLUCONAZOLE
     Route: 048
  22. HYDROCHLOROTHIAZIDE [Concomitant]
     Active Substance: HYDROCHLOROTHIAZIDE
  23. HYDROCORTISONE [Concomitant]
     Active Substance: HYDROCORTISONE
     Route: 061
  24. MAGNESIUM [Concomitant]
     Active Substance: MAGNESIUM
     Route: 048

REACTIONS (13)
  - Off label use [Unknown]
  - Rhinitis allergic [Unknown]
  - Hypertension [Unknown]
  - Hypothyroidism [Unknown]
  - Obesity [Unknown]
  - Oedema [Unknown]
  - Vitamin D deficiency [Unknown]
  - Eczema [Unknown]
  - Psoriasis [Unknown]
  - Osteoarthritis [Unknown]
  - Blood immunoglobulin E increased [Unknown]
  - Lichenification [Unknown]
  - Neurodermatitis [Unknown]
